FAERS Safety Report 6167188-6 (Version None)
Quarter: 2009Q2

REPORT INFORMATION
  Report Type: 
  Country: None (occurrence: None)
  Receive Date: 20090423
  Receipt Date: 20090416
  Transmission Date: 20091009
  Serious: Yes (Other)
  Sender: FDA-Public Use
  Company Number: CHPA2009US09448

PATIENT
  Age: 11 Year
  Sex: Male
  Weight: 37.6 kg

DRUGS (1)
  1. TRANSDERM SCOP [Suspect]
     Indication: SURGERY
     Dosage: 1/2 PATCH, Q72H, VIA FALSA
     Route: 062
     Dates: start: 20090307, end: 20090310

REACTIONS (7)
  - ACCIDENTAL EXPOSURE [None]
  - BLINDNESS [None]
  - HEADACHE [None]
  - NAUSEA [None]
  - OVERDOSE [None]
  - VISION BLURRED [None]
  - WRONG TECHNIQUE IN DRUG USAGE PROCESS [None]
